FAERS Safety Report 19587875 (Version 1)
Quarter: 2021Q3

REPORT INFORMATION
  Report Type: Spontaneous
  Country: US (occurrence: US)
  Receive Date: 20210721
  Receipt Date: 20210721
  Transmission Date: 20211014
  Serious: No
  Sender: FDA-Public Use
  Company Number: None

PATIENT
  Age: 37 Year
  Sex: Male
  Weight: 178.3 kg

DRUGS (1)
  1. GENOTROPIN [Suspect]
     Active Substance: SOMATROPIN
     Indication: HYPOPITUITARISM
     Route: 058
     Dates: start: 20210610, end: 20210718

REACTIONS (4)
  - Joint swelling [None]
  - Respiratory tract infection [None]
  - Swelling [None]
  - Peripheral swelling [None]

NARRATIVE: CASE EVENT DATE: 20210717
